FAERS Safety Report 5689371-6 (Version None)
Quarter: 2008Q1

REPORT INFORMATION
  Report Type: 
  Country: None (occurrence: None)
  Receive Date: 20080331
  Receipt Date: 20080319
  Transmission Date: 20080703
  Serious: Yes (Other)
  Sender: FDA-Public Use
  Company Number: ES-PFIZER INC-2008011652

PATIENT
  Sex: Male
  Weight: 83 kg

DRUGS (7)
  1. CHAMPIX [Suspect]
     Indication: SMOKING CESSATION THERAPY
     Route: 048
     Dates: start: 20080103, end: 20080118
  2. ADIRO [Concomitant]
     Dosage: DAILY DOSE:100MG
  3. ATENOLOL [Concomitant]
     Dosage: DAILY DOSE:25MG
  4. PRAVASTATIN [Concomitant]
     Dosage: DAILY DOSE:20MG
     Dates: start: 19951101, end: 20080121
  5. LEXATIN [Concomitant]
     Dosage: DAILY DOSE:1.5MG
  6. ISCOVER [Concomitant]
  7. ENALAPRIL MALEATE [Concomitant]

REACTIONS (1)
  - HEPATITIS TOXIC [None]
